FAERS Safety Report 8282517-5 (Version None)
Quarter: 2012Q2

REPORT INFORMATION
  Report Type: 
  Country: None (occurrence: None)
  Receive Date: 20120413
  Receipt Date: 20120411
  Transmission Date: 20120825
  Serious: Yes (Hospitalization)
  Sender: FDA-Public Use
  Company Number: TW-ROCHE-1058901

PATIENT
  Age: 48 Year
  Sex: Male

DRUGS (1)
  1. PEGASYS [Suspect]
     Indication: HEPATITIS B
     Route: 058
     Dates: start: 20120102

REACTIONS (1)
  - MOUTH ULCERATION [None]
